FAERS Safety Report 23827348 (Version 1)
Quarter: 2024Q2

REPORT INFORMATION
  Report Type: Spontaneous
  Country: CN (occurrence: CN)
  Receive Date: 20240507
  Receipt Date: 20240507
  Transmission Date: 20240716
  Serious: Yes (Hospitalization)
  Sender: FDA-Public Use
  Company Number: None

PATIENT
  Age: 54 Year
  Sex: Female
  Weight: 45 kg

DRUGS (6)
  1. CYCLOPHOSPHAMIDE [Suspect]
     Active Substance: CYCLOPHOSPHAMIDE
     Indication: Breast cancer female
     Dosage: 0.8 G, ONE TIME IN ONE DAY, DILUTED WITH 50 ML OF 0.9% SODIUM CHLORIDE, COMBINED CHEMOTHERAPY, IN MO
     Route: 041
     Dates: start: 20240411, end: 20240411
  2. SODIUM CHLORIDE [Suspect]
     Active Substance: SODIUM CHLORIDE
     Indication: Medication dilution
     Dosage: 0.9%, 250 ML, ONE TIME IN ONE DAY, USED TO DILUTE 360 MG OF TRASTUZUMAB, DOSAGE FORM: INJECTION, IN
     Route: 041
     Dates: start: 20240410, end: 20240410
  3. SODIUM CHLORIDE [Suspect]
     Active Substance: SODIUM CHLORIDE
     Dosage: 0.9%, 50 ML, ONE TIME IN ONE DAY, USED TO DILUTE 0.8 G OF CYCLOPHOSPHAMIDE, DOSAGE FORM: INJECTION,
     Route: 041
     Dates: start: 20240411, end: 20240411
  4. SODIUM CHLORIDE [Suspect]
     Active Substance: SODIUM CHLORIDE
     Dosage: 0.9%, 250 ML, ONE TIME IN ONE DAY, USED TO DILUTE 100 MG OF DOCETAXEL, DOSAGE FORM: INJECTION, IN MO
     Route: 041
     Dates: start: 20240411, end: 20240411
  5. DOCETAXEL [Suspect]
     Active Substance: DOCETAXEL\DOCETAXEL ANHYDROUS
     Indication: Breast cancer female
     Dosage: 100 MG, ONE TIME IN ONE DAY, DILUTED WITH 250 ML OF 0.9% SODIUM CHLORIDE, COMBINED CHEMOTHERAPY, IN
     Route: 041
     Dates: start: 20240411, end: 20240411
  6. TRASTUZUMAB [Suspect]
     Active Substance: TRASTUZUMAB
     Indication: Breast cancer female
     Dosage: 360 MG, ONE TIME IN ONE DAY, DILUTED WITH 250 ML OF 0.9% SODIUM CHLORIDE, TARGETED THERAPY, IN MORNI
     Route: 041
     Dates: start: 20240410, end: 20240410

REACTIONS (1)
  - Hepatic function abnormal [Recovering/Resolving]

NARRATIVE: CASE EVENT DATE: 20240413
